FAERS Safety Report 8306802-3 (Version None)
Quarter: 2012Q2

REPORT INFORMATION
  Report Type: 
  Country: None (occurrence: None)
  Receive Date: 20120424
  Receipt Date: 20120418
  Transmission Date: 20120825
  Serious: No
  Sender: FDA-Public Use
  Company Number: US-PFIZER INC-2012096730

PATIENT
  Sex: Female

DRUGS (5)
  1. MOBIC [Concomitant]
  2. METFORMIN [Concomitant]
  3. EFFEXOR XR [Suspect]
     Dosage: 3 DF (75 UNKNOWN UNIT), 1X/DAY
  4. XANAX [Concomitant]
  5. LOPID [Concomitant]

REACTIONS (3)
  - BACK INJURY [None]
  - DEPRESSION [None]
  - BACK DISORDER [None]
